FAERS Safety Report 10431247 (Version 1)
Quarter: 2014Q3

REPORT INFORMATION
  Report Type: Spontaneous
  Country: IN (occurrence: IN)
  Receive Date: 20140904
  Receipt Date: 20140904
  Transmission Date: 20150326
  Serious: Yes (Other)
  Sender: FDA-Public Use
  Company Number: PHHY2014IN108548

PATIENT
  Age: 2 Month
  Sex: Male
  Weight: 5 kg

DRUGS (13)
  1. CALCIUM [Concomitant]
     Active Substance: CALCIUM
     Indication: HYPOCALCAEMIA
  2. ENALAPRIL [Suspect]
     Active Substance: ENALAPRIL
  3. IMMUNOGLOBULIN I.V [Suspect]
     Active Substance: HUMAN IMMUNOGLOBULIN G
  4. CALCIUM CARBONATE. [Concomitant]
     Active Substance: CALCIUM CARBONATE
     Indication: CARDIOMYOPATHY
     Dosage: 100 MG/KG, PER DAY
  5. FUROSEMIDE. [Suspect]
     Active Substance: FUROSEMIDE
     Route: 042
  6. CALCITRIOL. [Concomitant]
     Active Substance: CALCITRIOL
     Indication: CARDIOMYOPATHY
     Dosage: 0.125 PG, PER DAY
  7. DIGOXIN. [Suspect]
     Active Substance: DIGOXIN
  8. CALCIUM [Concomitant]
     Active Substance: CALCIUM
     Indication: CARDIOMYOPATHY
     Route: 042
  9. CALCIUM GLUCONATE. [Concomitant]
     Active Substance: CALCIUM GLUCONATE
     Indication: CARDIOMYOPATHY
     Dosage: 80 MG/KG, PER DAY
     Route: 041
  10. DOBUTAMINE [Suspect]
     Active Substance: DOBUTAMINE\DOBUTAMINE HYDROCHLORIDE
  11. CALCITRIOL. [Concomitant]
     Active Substance: CALCITRIOL
     Indication: HYPOCALCAEMIA
  12. CALCIUM GLUCONATE. [Concomitant]
     Active Substance: CALCIUM GLUCONATE
     Indication: HYPOCALCAEMIA
     Dosage: 10 ML, UNK
  13. CALCIUM CARBONATE. [Concomitant]
     Active Substance: CALCIUM CARBONATE
     Indication: HYPOCALCAEMIA

REACTIONS (5)
  - Respiratory distress [Unknown]
  - Grunting [Unknown]
  - Condition aggravated [Unknown]
  - Metabolic acidosis [Unknown]
  - Cyanosis [Unknown]
